FAERS Safety Report 26216069 (Version 1)
Quarter: 2025Q4

REPORT INFORMATION
  Report Type: Spontaneous
  Country: US (occurrence: US)
  Receive Date: 20251231
  Receipt Date: 20251231
  Transmission Date: 20260118
  Serious: Yes (Life-Threatening, Hospitalization, Other)
  Sender: MANKIND PHARMA
  Company Number: US-MANKIND PHARMA LIMITED-2025-US-00204

PATIENT

DRUGS (3)
  1. NALOXONE HYDROCHLORIDE [Suspect]
     Active Substance: NALOXONE HYDROCHLORIDE
     Indication: Overdose
     Dosage: 0.32 MILLIGRAM (A BOLUS)
     Route: 042
  2. NALOXONE HYDROCHLORIDE [Suspect]
     Active Substance: NALOXONE HYDROCHLORIDE
     Dosage: 0.04 TO 0.16 MG, TOTALING 0.4 MG (4 BOLUS OVER THE COURSE OF 5 HOURS))
     Route: 042
  3. NALOXONE HYDROCHLORIDE [Suspect]
     Active Substance: NALOXONE HYDROCHLORIDE
     Dosage: 0.12 MG/HOUR, APPROXIMATELY 17 HOURS AFTER ARRIVAL
     Route: 042

REACTIONS (1)
  - Therapeutic response decreased [Unknown]
